FAERS Safety Report 4557107-8 (Version None)
Quarter: 2005Q1

REPORT INFORMATION
  Report Type: 
  Country: None (occurrence: None)
  Receive Date: 20050120
  Receipt Date: 20050117
  Transmission Date: 20050727
  Serious: Yes (Other)
  Sender: FDA-Public Use
  Company Number: DE-GLAXOSMITHKLINE-D0045642A

PATIENT
  Sex: Male

DRUGS (4)
  1. AVODART [Suspect]
     Indication: BENIGN PROSTATIC HYPERPLASIA
     Route: 048
  2. ANTIHYPERTENSIVES [Concomitant]
     Indication: HYPERTENSION
     Route: 065
  3. ALCOHOL [Concomitant]
     Route: 048
  4. MULTIPLE MEDICATIONS [Concomitant]
     Route: 065

REACTIONS (1)
  - HEPATIC ENZYME INCREASED [None]
